FAERS Safety Report 6677971-6 (Version None)
Quarter: 2010Q2

REPORT INFORMATION
  Report Type: 
  Country: None (occurrence: None)
  Receive Date: 20100412
  Receipt Date: 20100331
  Transmission Date: 20101027
  Serious: Yes (Life-Threatening, Hospitalization)
  Sender: FDA-Public Use
  Company Number: AU-ELI_LILLY_AND_COMPANY-AU201004000137

PATIENT
  Age: 35 Year
  Sex: Female

DRUGS (6)
  1. FLUOXETINE [Suspect]
     Indication: MAJOR DEPRESSION
     Dosage: 60 MG, DAILY (1/D)
     Route: 065
  2. FLUOXETINE [Interacting]
     Dosage: 80 MG, DAILY (1/D)
     Route: 065
  3. ZUCLOPENTHIXOL [Interacting]
     Dosage: 100 MG, UNKNOWN
     Route: 030
  4. QUETIAPINE [Concomitant]
     Dosage: 1500 MG, UNKNOWN
     Route: 065
  5. QUETIAPINE [Concomitant]
     Dosage: 100 MG, AS NEEDED
     Route: 065
  6. NITRAZEPAM [Concomitant]
     Dosage: 375 MG, UNKNOWN
     Route: 065

REACTIONS (2)
  - DRUG INEFFECTIVE [None]
  - DRUG INTERACTION [None]
